FAERS Safety Report 5158969-6 (Version None)
Quarter: 2006Q4

REPORT INFORMATION
  Report Type: 
  Country: None (occurrence: None)
  Receive Date: 20061128
  Receipt Date: 20061006
  Transmission Date: 20070319
  Serious: Yes (Hospitalization)
  Sender: FDA-Public Use
  Company Number: PL-BRISTOL-MYERS SQUIBB COMPANY-13533021

PATIENT
  Age: 61 Year
  Sex: Female

DRUGS (6)
  1. ABATACEPT [Suspect]
     Indication: RHEUMATOID ARTHRITIS
     Route: 042
     Dates: start: 20040405
  2. METHOTREXATE [Suspect]
     Indication: RHEUMATOID ARTHRITIS
     Route: 048
     Dates: start: 20001221
  3. ACETAMINOPHEN [Concomitant]
     Dates: start: 20040616
  4. FOLIC ACID [Concomitant]
     Dates: start: 20021107
  5. ESTRADIOL INJ [Concomitant]
     Dates: start: 20030321
  6. NORETHINDRONE ACETATE [Concomitant]
     Indication: HORMONE REPLACEMENT THERAPY
     Dates: start: 20030321

REACTIONS (1)
  - MYOCARDIAL INFARCTION [None]
